FAERS Safety Report 25500802 (Version 2)
Quarter: 2025Q3

REPORT INFORMATION
  Report Type: Spontaneous
  Country: OM (occurrence: OM)
  Receive Date: 20250701
  Receipt Date: 20250710
  Transmission Date: 20251020
  Serious: Yes (Death)
  Sender: ELI LILLY AND COMPANY
  Company Number: OM-Merck Healthcare KGaA-2025032449

PATIENT
  Age: 69 Year
  Sex: Male

DRUGS (1)
  1. ERBITUX [Suspect]
     Active Substance: CETUXIMAB
     Indication: Laryngeal cancer
     Route: 065
     Dates: start: 20250518

REACTIONS (2)
  - Cardiac arrest [Fatal]
  - Off label use [Unknown]

NARRATIVE: CASE EVENT DATE: 20250518
